FAERS Safety Report 4995294-8 (Version None)
Quarter: 2006Q2

REPORT INFORMATION
  Report Type: 
  Country: None (occurrence: None)
  Receive Date: 20060508
  Receipt Date: 20060502
  Transmission Date: 20061013
  Serious: Yes (Death)
  Sender: FDA-Public Use
  Company Number: US-MERCK-0605USA00767

PATIENT
  Sex: Female

DRUGS (2)
  1. VIOXX [Suspect]
     Indication: PAIN MANAGEMENT
     Route: 048
  2. VIOXX [Suspect]
     Indication: INFLAMMATION
     Route: 048

REACTIONS (3)
  - INJURY [None]
  - MYOCARDIAL INFARCTION [None]
  - PAIN [None]
